FAERS Safety Report 5905740-0 (Version None)
Quarter: 2008Q4

REPORT INFORMATION
  Report Type: 
  Country: None (occurrence: None)
  Receive Date: 20081001
  Receipt Date: 20081001
  Transmission Date: 20090506
  Serious: No
  Sender: FDA-Public Use
  Company Number: None

PATIENT
  Age: 56 Year
  Sex: Male
  Weight: 82.33 kg

DRUGS (2)
  1. OMEPRAZOLE [Suspect]
     Indication: PROPHYLAXIS
     Dosage: 20 MG EVERY DAY PO
     Route: 048
     Dates: start: 20080830, end: 20080901
  2. OMEPRAZOLE [Suspect]
     Indication: ULCER
     Dosage: 20 MG EVERY DAY PO
     Route: 048
     Dates: start: 20080830, end: 20080901

REACTIONS (2)
  - EYE SWELLING [None]
  - OEDEMA PERIPHERAL [None]
